FAERS Safety Report 8533759 (Version 3)
Quarter: 2013Q2

REPORT INFORMATION
  Report Type: Report from Study
  Country: IT (occurrence: IT)
  Receive Date: 20120427
  Receipt Date: 20130530
  Transmission Date: 20140414
  Serious: Yes (Life-Threatening, Hospitalization, Other)
  Sender: FDA-Public Use
  Company Number: IT-CELGENEUS-083-C5013-12033151

PATIENT
  Age: 72 Year
  Sex: Male

DRUGS (5)
  1. CHLORAMBUCIL [Suspect]
     Indication: CHRONIC LYMPHOCYTIC LEUKAEMIA
     Route: 065
     Dates: start: 20110310, end: 20120309
  2. ALLOPURINOL [Concomitant]
     Indication: PROPHYLAXIS
     Dosage: 300 MILLIGRAM
     Route: 048
     Dates: start: 20110210
  3. LISINOPRIL [Concomitant]
     Indication: HYPERTENSION
     Dosage: 20 MILLIGRAM
     Route: 048
     Dates: start: 20120222, end: 20120327
  4. ASA [Concomitant]
     Indication: HYPERTENSION
     Dosage: 100 MILLIGRAM
     Route: 048
     Dates: start: 20120222, end: 20120327
  5. LACIDIPINE [Concomitant]
     Indication: HYPERTENSION
     Dosage: 6 MILLIGRAM
     Route: 048
     Dates: start: 20120222, end: 20120327

REACTIONS (3)
  - Acute myeloid leukaemia [Recovered/Resolved]
  - Thrombocytopenia [Recovered/Resolved]
  - Anaemia [Unknown]
